FAERS Safety Report 8982549 (Version 1)
Quarter: 2012Q4

REPORT INFORMATION
  Report Type: 
  Country: US (occurrence: US)
  Receive Date: 20121222
  Receipt Date: 20121222
  Transmission Date: 20130627
  Serious: No
  Sender: FDA-Public Use
  Company Number: US-ASTRAZENECA-2012SE87894

PATIENT
  Age: 62 Year
  Sex: Female
  Weight: 77.1 kg

DRUGS (7)
  1. CRESTOR [Suspect]
     Indication: BLOOD CHOLESTEROL INCREASED
     Route: 048
     Dates: start: 2007, end: 201206
  2. CRESTOR [Suspect]
     Indication: BLOOD CHOLESTEROL INCREASED
     Route: 048
     Dates: start: 20121008, end: 20121024
  3. PRINIVIL [Concomitant]
     Indication: HYPERTENSION
  4. VERAPAMIL [Concomitant]
     Indication: HYPERTENSION
  5. ASPIRIN [Concomitant]
  6. SINGULAIR [Concomitant]
     Indication: ASTHMA
  7. ADVAIR [Concomitant]
     Indication: ASTHMA

REACTIONS (9)
  - Swelling [Unknown]
  - Haemorrhage [Unknown]
  - Scab [Unknown]
  - Hypersensitivity [Unknown]
  - Pruritus [Unknown]
  - Urticaria [Unknown]
  - Blood cholesterol increased [Unknown]
  - Rash generalised [Recovering/Resolving]
  - Intentional drug misuse [Unknown]
